FAERS Safety Report 23515788 (Version 1)
Quarter: 2024Q1

REPORT INFORMATION
  Report Type: Spontaneous
  Country: ES (occurrence: ES)
  Receive Date: 20240213
  Receipt Date: 20240213
  Transmission Date: 20240409
  Serious: Yes (Hospitalization, Other)
  Sender: FDA-Public Use
  Company Number: None

PATIENT

DRUGS (3)
  1. CISPLATIN [Suspect]
     Active Substance: CISPLATIN
     Indication: Angioimmunoblastic T-cell lymphoma
     Dosage: 1ST CYCLE: 75MG/M2 (123MG) DAILY +8 (15-SEP). 2ND CYCLE: 100 MG/M2 (105 MG) 13-OCT-2023
     Route: 042
     Dates: start: 20230915, end: 20231013
  2. GEMCITABINE [Suspect]
     Active Substance: GEMCITABINE
     Indication: Angioimmunoblastic T-cell lymphoma
     Dosage: 1ST CYCLE: 1G/M2 (1641 MG) ON DAYS +1 (08-SEP) AND +8 (15-SEP). 2ND CYCLE: 1G/M2 (1412MG) 13-OCT-202
     Route: 042
     Dates: start: 20230908, end: 20231013
  3. DEXAMETHASONE [Concomitant]
     Active Substance: DEXAMETHASONE
     Indication: Angioimmunoblastic T-cell lymphoma
     Dosage: UNK
     Route: 048
     Dates: start: 20230908, end: 20230911

REACTIONS (1)
  - Acute kidney injury [Recovered/Resolved]

NARRATIVE: CASE EVENT DATE: 20231020
